FAERS Safety Report 17373407 (Version 2)
Quarter: 2021Q2

REPORT INFORMATION
  Report Type: Spontaneous
  Country: GB (occurrence: GB)
  Receive Date: 20200206
  Receipt Date: 20210527
  Transmission Date: 20210716
  Serious: Yes (Hospitalization, Other)
  Sender: FDA-Public Use
  Company Number: GB-SUN PHARMACEUTICAL INDUSTRIES LTD-2020RR-235738

PATIENT
  Age: 56 Year
  Sex: Female

DRUGS (20)
  1. DENOSUMAB [Suspect]
     Active Substance: DENOSUMAB
     Dosage: 150 MILLIGRAM, 1DOSE/4WEEKS
     Route: 042
     Dates: start: 20151126
  2. DOMPERIDONE [Concomitant]
     Active Substance: DOMPERIDONE
     Indication: PRODUCT USED FOR UNKNOWN INDICATION
     Dosage: 10 MILLIGRAM, STANDARD DRUG IN SECOND CHEMO REGIME, AS NEEDED
     Route: 048
     Dates: start: 20151126
  3. DENOSUMAB [Suspect]
     Active Substance: DENOSUMAB
     Indication: BREAST CANCER
     Dosage: 120 MILLIGRAM, 1DOSE/4WEEKS, 1 CYCLE
     Route: 058
     Dates: start: 20150723
  4. PERTUZUMAB. [Suspect]
     Active Substance: PERTUZUMAB
     Dosage: 420 MILLIGRAM, 1DOSE/3WEEKS, 6 CYCLES
     Route: 042
     Dates: start: 20151215, end: 20181204
  5. TRASTUZUMAB EMTANSINE [Suspect]
     Active Substance: ADO-TRASTUZUMAB EMTANSINE
     Indication: BREAST CANCER
     Dosage: 672 MILLIGRAM, 1DOSE/3WEEKS, 6 CYCLES
     Route: 042
     Dates: start: 20151126
  6. DENOSUMAB [Suspect]
     Active Substance: DENOSUMAB
     Dosage: 70 MILLIGRAM, 1DOSE/MIN
     Route: 058
     Dates: start: 20150820
  7. LOPERAMIDE [Concomitant]
     Active Substance: LOPERAMIDE
     Indication: PRODUCT USED FOR UNKNOWN INDICATION
     Dosage: 2 MILLIGRAM, STANDARD DRUG IN SECOND CHEMO REGIME, AS NEEDED
     Route: 048
     Dates: start: 20151126
  8. DOCETAXEL. [Suspect]
     Active Substance: DOCETAXEL
     Indication: BREAST CANCER
     Dosage: 150 MILLIGRAM, 1DOSE/3WEEKS
     Route: 042
     Dates: start: 20151217, end: 20160308
  9. TRASTUZUMAB. [Suspect]
     Active Substance: TRASTUZUMAB
     Indication: BREAST CANCER
     Dosage: 672 MILLIGRAM, 1DOSE/3WEEKS, 6 CYCLES
     Route: 042
     Dates: start: 20151127, end: 20181204
  10. CALCICHEW [Concomitant]
     Active Substance: CALCIUM CARBONATE
     Indication: PRODUCT USED FOR UNKNOWN INDICATION
     Dosage: 1.25 GRAM, DAILY, STANDARD SUPPLIMENT
     Route: 048
     Dates: start: 20150723
  11. LETROZOLE. [Suspect]
     Active Substance: LETROZOLE
     Indication: BREAST CANCER
     Dosage: 2.5 MILLIGRAM,UNK
     Route: 048
     Dates: start: 20150709, end: 20151015
  12. FLUCONAZOLE. [Concomitant]
     Active Substance: FLUCONAZOLE
     Indication: PRODUCT USED FOR UNKNOWN INDICATION
     Dosage: 50 MILLIGRAM, STANDARDPROPHYLACTICFOR 2NDREGIME
     Route: 048
     Dates: start: 20151130
  13. FLUCONAZOLE. [Concomitant]
     Active Substance: FLUCONAZOLE
     Dosage: 50 MILLIGRAM, START DAY 5 POST CHEMO FOR 7 DAYS
     Route: 048
     Dates: start: 20151130
  14. COLECALCIFEROL [Concomitant]
     Active Substance: CHOLECALCIFEROL
     Indication: PULMONARY EMBOLISM
     Dosage: 20000 UNIT, DAILY
     Route: 048
     Dates: start: 20151203
  15. DEXAMETHASONE. [Concomitant]
     Active Substance: DEXAMETHASONE
     Indication: PRODUCT USED FOR UNKNOWN INDICATION
     Dosage: 8 MILLIGRAM, DAILY, STANDARD DRUG IN SECOND STEROID REGIME,PRIOR TO CHEMO CYCLE
     Route: 048
     Dates: start: 20151125
  16. LEVOFLOXACIN. [Concomitant]
     Active Substance: LEVOFLOXACIN
     Indication: PRODUCT USED FOR UNKNOWN INDICATION
     Dosage: 500 MILLIGRAM, STANDARD PROPHYLACTIC DRUG GIVEN WITH 2ND REGIME
     Route: 048
     Dates: start: 20151130
  17. DALTEPARIN [Concomitant]
     Active Substance: DALTEPARIN
     Indication: PRODUCT USED FOR UNKNOWN INDICATION
     Dosage: 10000 UNITS, DAILY
     Route: 058
     Dates: start: 20160421
  18. TRASTUZUMAB EMTANSINE [Suspect]
     Active Substance: ADO-TRASTUZUMAB EMTANSINE
     Dosage: 672 MILLIGRAM, 1DOSE/3WEEKS
     Route: 042
     Dates: start: 20151217, end: 20190602
  19. PERTUZUMAB. [Suspect]
     Active Substance: PERTUZUMAB
     Indication: BREAST CANCER
     Dosage: 840 MILLIGRAM, LOADING DOSE
     Route: 042
     Dates: start: 20151125, end: 20151125
  20. DOCETAXEL. [Suspect]
     Active Substance: DOCETAXEL
     Dosage: 150 MILLIGRAM, 1DOSE/3WEEKS, 6 CYCLES
     Route: 042
     Dates: start: 20151127

REACTIONS (10)
  - Febrile neutropenia [Recovered/Resolved]
  - Constipation [Unknown]
  - Febrile neutropenia [Recovered/Resolved]
  - Rectal haemorrhage [Recovered/Resolved]
  - Neurotoxicity [Unknown]
  - Alopecia [Recovered/Resolved]
  - Headache [Recovered/Resolved]
  - Nausea [Unknown]
  - Oropharyngeal pain [Recovered/Resolved]
  - Stomatitis [Unknown]

NARRATIVE: CASE EVENT DATE: 20151202
